FAERS Safety Report 23010096 (Version 4)
Quarter: 2023Q4

REPORT INFORMATION
  Report Type: Report from Study
  Country: US (occurrence: US)
  Receive Date: 20230929
  Receipt Date: 20231108
  Transmission Date: 20240110
  Serious: Yes (Other)
  Sender: FDA-Public Use
  Company Number: US-SA-SAC20230928000181

PATIENT
  Age: 7 Month
  Sex: Male

DRUGS (4)
  1. ALPROLIX [Suspect]
     Active Substance: EFTRENONACOG ALFA
     Indication: Factor IX deficiency
     Dosage: 1250 UNITS (+/-10%)
     Route: 042
     Dates: start: 20230919
  2. ALPROLIX [Suspect]
     Active Substance: EFTRENONACOG ALFA
     Indication: Factor IX deficiency
     Dosage: 1250 UNITS (+/-10%)
     Route: 042
     Dates: start: 20230919
  3. ALPROLIX [Suspect]
     Active Substance: EFTRENONACOG ALFA
     Dosage: 500 U
     Route: 042
  4. ALPROLIX [Suspect]
     Active Substance: EFTRENONACOG ALFA
     Dosage: 500 U
     Route: 042

REACTIONS (7)
  - Anti factor IX antibody positive [Unknown]
  - Post procedural haemorrhage [Unknown]
  - Post procedural contusion [Unknown]
  - Penile erythema [Unknown]
  - Laboratory test abnormal [Unknown]
  - Circumcision [Unknown]
  - Drug ineffective [Unknown]

NARRATIVE: CASE EVENT DATE: 20230101
